FAERS Safety Report 7127275-2 (Version None)
Quarter: 2010Q4

REPORT INFORMATION
  Report Type: 
  Country: None (occurrence: None)
  Receive Date: 20101129
  Receipt Date: 20100419
  Transmission Date: 20110411
  Serious: Yes (Other)
  Sender: FDA-Public Use
  Company Number: US-PFIZER INC-2010049978

PATIENT
  Sex: Male
  Weight: 108.84 kg

DRUGS (3)
  1. VIAGRA [Suspect]
     Indication: ERECTILE DYSFUNCTION
     Dosage: 100 MG, AS NEEDED
  2. CLOZAPINE [Suspect]
     Dosage: UNK
  3. LITHIUM [Concomitant]
     Dosage: UNK

REACTIONS (3)
  - ANORGASMIA [None]
  - ERECTILE DYSFUNCTION [None]
  - HYPERTENSION [None]
